FAERS Safety Report 9878175 (Version 2)
Quarter: 2014Q1

REPORT INFORMATION
  Report Type: Spontaneous
  Country: PL (occurrence: PL)
  Receive Date: 20140206
  Receipt Date: 20140212
  Transmission Date: 20141002
  Serious: Yes (Death)
  Sender: FDA-Public Use
  Company Number: PHHY2014PL013183

PATIENT
  Age: 55 Year
  Sex: Male

DRUGS (1)
  1. OCTREOTIDE [Suspect]
     Indication: ACROMEGALY
     Dosage: 30 MG, EVERY 28 DAYS

REACTIONS (1)
  - Death [Fatal]
